FAERS Safety Report 15590436 (Version 1)
Quarter: 2018Q4

REPORT INFORMATION
  Report Type: Spontaneous
  Country: CA (occurrence: CA)
  Receive Date: 20181106
  Receipt Date: 20181106
  Transmission Date: 20190205
  Serious: Yes (Hospitalization)
  Sender: FDA-Public Use
  Company Number: CA-PERRIGO-18CA011884

PATIENT
  Age: 39 Year
  Sex: Male

DRUGS (7)
  1. INSULIN GLARGINE [Concomitant]
     Active Substance: INSULIN GLARGINE
     Indication: PRODUCT USED FOR UNKNOWN INDICATION
     Dosage: 100 UNITS, QHS
     Route: 058
  2. MARIJUANA [Concomitant]
     Active Substance: CANNABIS SATIVA SUBSP. INDICA TOP
     Indication: PRODUCT USED FOR UNKNOWN INDICATION
     Dosage: 1 G, QD
     Route: 055
  3. OXYCODONE [Concomitant]
     Active Substance: OXYCODONE
     Indication: PRODUCT USED FOR UNKNOWN INDICATION
     Dosage: 45 MG, TID
     Route: 048
  4. CYANOCOBALAMIN. [Concomitant]
     Active Substance: CYANOCOBALAMIN
     Indication: PRODUCT USED FOR UNKNOWN INDICATION
     Dosage: 250 MG, WEEKLY
     Route: 030
  5. TESTOSTERONE CYPIONATE. [Suspect]
     Active Substance: TESTOSTERONE CYPIONATE
     Indication: INTENTIONAL PRODUCT MISUSE
     Dosage: 100 MG, WEEKLY
     Route: 030
  6. TESTOSTERONE ENANTHATE. [Suspect]
     Active Substance: TESTOSTERONE ENANTHATE
     Indication: INTENTIONAL PRODUCT MISUSE
     Dosage: 100 MG, WEEKLY
     Route: 030
  7. TESTOSTERONE DECANOATE [Suspect]
     Active Substance: TESTOSTERONE DECANOATE
     Indication: INTENTIONAL PRODUCT MISUSE
     Dosage: 200 MG, WEEKLY
     Route: 030

REACTIONS (1)
  - Cardiac failure [Recovered/Resolved]
